FAERS Safety Report 10257607 (Version 1)
Quarter: 2014Q2

REPORT INFORMATION
  Report Type: Spontaneous
  Country: FR (occurrence: FR)
  Receive Date: 20140625
  Receipt Date: 20140625
  Transmission Date: 20141212
  Serious: Yes (Hospitalization)
  Sender: FDA-Public Use
  Company Number: FR-TEVA-489468ISR

PATIENT
  Age: 14 Year
  Sex: Male

DRUGS (2)
  1. PAMIDRONATE DE SODIUM TEVA 3 MG/ML [Suspect]
     Indication: OSTEOPOROSIS
     Route: 042
     Dates: start: 201112, end: 201112
  2. PAMIDRONATE DE SODIUM TEVA 3 MG/ML [Suspect]
     Indication: BACK PAIN
     Route: 042
     Dates: start: 201112, end: 201112

REACTIONS (6)
  - Bone pain [Recovered/Resolved]
  - Pyrexia [Recovered/Resolved]
  - Erythema [Recovered/Resolved]
  - Musculoskeletal stiffness [None]
  - Chest discomfort [None]
  - Influenza like illness [None]
